FAERS Safety Report 5714026-9 (Version None)
Quarter: 2008Q2

REPORT INFORMATION
  Report Type: 
  Country: None (occurrence: None)
  Receive Date: 20080422
  Receipt Date: 20080422
  Transmission Date: 20081010
  Serious: Yes (Death)
  Sender: FDA-Public Use
  Company Number: None

PATIENT
  Sex: Male
  Weight: 62 kg

DRUGS (2)
  1. CLOLAR [Suspect]
     Dosage: 352 MG
  2. CYTARABINE [Suspect]
     Dosage: 8800 MG

REACTIONS (5)
  - DIALYSIS [None]
  - ENTEROCOCCAL INFECTION [None]
  - RENAL FAILURE [None]
  - RESPIRATORY FAILURE [None]
  - STAPHYLOCOCCAL INFECTION [None]
